FAERS Safety Report 22020793 (Version 1)
Quarter: 2023Q1

REPORT INFORMATION
  Report Type: Spontaneous
  Country: US (occurrence: None)
  Receive Date: 20230217
  Receipt Date: 20230217
  Transmission Date: 20230418
  Serious: Yes (Hospitalization)
  Sender: FDA-Public Use
  Company Number: None

PATIENT
  Sex: Female

DRUGS (1)
  1. TALTZ [Suspect]
     Active Substance: IXEKIZUMAB
     Indication: Ankylosing spondylitis
     Dosage: FREQUENCY : MONTHLY;?
     Route: 058
     Dates: start: 20230201, end: 20230208

REACTIONS (8)
  - Hypersensitivity [None]
  - Middle insomnia [None]
  - Swelling [None]
  - Erythema [None]
  - Swollen tongue [None]
  - Dysphagia [None]
  - Dyspnoea [None]
  - Lip swelling [None]
